FAERS Safety Report 8995330 (Version 2)
Quarter: 2013Q1

REPORT INFORMATION
  Report Type: Spontaneous
  Country: JP (occurrence: JP)
  Receive Date: 20130102
  Receipt Date: 20130122
  Transmission Date: 20140127
  Serious: Yes (Other)
  Sender: FDA-Public Use
  Company Number: JP-ASTRAZENECA-2012SE96018

PATIENT
  Age: 83 Year
  Sex: Female
  Weight: 30 kg

DRUGS (2)
  1. SEROQUEL [Suspect]
     Indication: AGITATION
     Route: 048
     Dates: start: 20070315, end: 20070401
  2. RISPERDAL [Concomitant]
     Indication: PSYCHOMOTOR HYPERACTIVITY
     Route: 048
     Dates: start: 20070402, end: 20070715

REACTIONS (2)
  - Pneumonia aspiration [Unknown]
  - Off label use [Unknown]
